FAERS Safety Report 4744564-7 (Version None)
Quarter: 2005Q3

REPORT INFORMATION
  Report Type: 
  Country: None (occurrence: None)
  Receive Date: 20050812
  Receipt Date: 20041129
  Transmission Date: 20060218
  Serious: Yes (Life-Threatening, Hospitalization)
  Sender: FDA-Public Use
  Company Number: IT-ABBOTT-04P-083-0281718-00

PATIENT
  Sex: Male

DRUGS (9)
  1. RITONAVIR SOFT GELATIN CAPSULES [Suspect]
     Indication: HIV INFECTION
     Route: 048
     Dates: start: 20030530, end: 20041118
  2. TIPRANAVIR [Concomitant]
     Indication: HIV INFECTION
     Route: 048
     Dates: start: 20030530, end: 20041118
  3. DIDANOSINE [Concomitant]
     Indication: HIV INFECTION
     Route: 048
     Dates: start: 20040317, end: 20041118
  4. EFAVIRENZ [Concomitant]
     Indication: HIV INFECTION
     Route: 048
     Dates: start: 20040313, end: 20041118
  5. LAMIVUDINE [Concomitant]
     Indication: HIV INFECTION
     Route: 048
     Dates: start: 20030530, end: 20041118
  6. FUZEON [Concomitant]
     Indication: HIV INFECTION
     Route: 058
     Dates: start: 20040313, end: 20041118
  7. FENOFIBRATE [Concomitant]
     Indication: HYPERLIPIDAEMIA
     Route: 048
     Dates: start: 20021213, end: 20041118
  8. BACTRIM [Concomitant]
     Indication: INFECTION PROPHYLAXIS
     Route: 048
     Dates: start: 20010126, end: 20041118
  9. CALCIUM FOLINATE [Concomitant]
     Indication: ANAEMIA PROPHYLAXIS
     Route: 048
     Dates: start: 20010706, end: 20041118

REACTIONS (3)
  - CEREBRAL HAEMATOMA [None]
  - CEREBRAL HAEMORRHAGE [None]
  - HYPERTENSIVE HYDROCEPHALUS [None]
